FAERS Safety Report 13996277 (Version 1)
Quarter: 2017Q3

REPORT INFORMATION
  Report Type: Spontaneous
  Country: IL (occurrence: IL)
  Receive Date: 20170921
  Receipt Date: 20170921
  Transmission Date: 20171128
  Serious: Yes (Death, Hospitalization)
  Sender: FDA-Public Use
  Company Number: IL-TARO PHARMACEUTICALS USA.,INC-2017SUN00334

PATIENT
  Age: 91 Year
  Sex: Female

DRUGS (3)
  1. NORMALOL [Concomitant]
     Active Substance: ATENOLOL
     Indication: PRODUCT USED FOR UNKNOWN INDICATION
     Dosage: 25 MG, DAILY
     Route: 065
  2. COUMADIN [Suspect]
     Active Substance: WARFARIN SODIUM
     Indication: ATRIAL FIBRILLATION
     Dosage: UNK
     Route: 048
  3. ENALAPRIL [Concomitant]
     Active Substance: ENALAPRIL
     Indication: PRODUCT USED FOR UNKNOWN INDICATION
     Dosage: 5 MG, DAILY
     Route: 065

REACTIONS (9)
  - Metabolic alkalosis [Unknown]
  - Dehydration [Unknown]
  - Haemoglobin decreased [Unknown]
  - Death [Fatal]
  - Blood pressure increased [Unknown]
  - Hypernatraemia [Unknown]
  - Cerebral haemorrhage [Unknown]
  - Brain oedema [Unknown]
  - International normalised ratio increased [Unknown]
